FAERS Safety Report 6572993-8 (Version None)
Quarter: 2010Q1

REPORT INFORMATION
  Report Type: 
  Country: None (occurrence: None)
  Receive Date: 20100208
  Receipt Date: 20100202
  Transmission Date: 20100710
  Serious: Yes (Death)
  Sender: FDA-Public Use
  Company Number: US-CELGENEUS-163-21880-10011105

PATIENT
  Sex: Male

DRUGS (6)
  1. REVLIMID [Suspect]
     Indication: MYELODYSPLASTIC SYNDROME
     Route: 048
     Dates: start: 20091210, end: 20100101
  2. REVLIMID [Suspect]
     Indication: MULTIPLE MYELOMA
  3. LASIX [Concomitant]
     Route: 065
     Dates: start: 20100102, end: 20100113
  4. LASIX [Concomitant]
  5. VITAMIN K TAB [Concomitant]
     Route: 065
     Dates: start: 20100102, end: 20100113
  6. VITAMIN K TAB [Concomitant]

REACTIONS (1)
  - CARDIAC FAILURE CONGESTIVE [None]
